FAERS Safety Report 9554611 (Version 1)
Quarter: 2013Q3

REPORT INFORMATION
  Report Type: Spontaneous
  Country: US (occurrence: US)
  Receive Date: 20130925
  Receipt Date: 20130925
  Transmission Date: 20140515
  Serious: Yes (Other)
  Sender: FDA-Public Use
  Company Number: US-BAXTER-2013BAX036663

PATIENT
  Age: 7 Day
  Sex: Male
  Weight: 4.2 kg

DRUGS (2)
  1. DOPAMINE HYDROCHLORIDE AND 5% DEXTROSE INJECTION, USP [Suspect]
     Indication: TRANSPOSITION OF THE GREAT VESSELS
     Route: 051
  2. DOPAMINE HYDROCHLORIDE AND 5% DEXTROSE INJECTION, USP [Suspect]
     Indication: ATRIAL SEPTAL DEFECT

REACTIONS (6)
  - Respiratory distress [Unknown]
  - Tachycardia [Unknown]
  - Hypertension [Unknown]
  - Intraventricular haemorrhage neonatal [Recovered/Resolved]
  - Intraventricular haemorrhage [Recovered/Resolved]
  - Accidental overdose [Recovered/Resolved]
